FAERS Safety Report 9929103 (Version 2)
Quarter: 2014Q2

REPORT INFORMATION
  Report Type: Report from Study
  Country: US (occurrence: US)
  Receive Date: 20140227
  Receipt Date: 20140407
  Transmission Date: 20141212
  Serious: Yes (Other)
  Sender: FDA-Public Use
  Company Number: US-ELI_LILLY_AND_COMPANY-US201402007091

PATIENT
  Age: 78 Year
  Sex: Female

DRUGS (4)
  1. TERIPARATIDE [Suspect]
     Indication: OSTEOPOROSIS
     Dosage: UNK UNK, QD
     Route: 058
     Dates: start: 201308
  2. TERIPARATIDE [Suspect]
     Indication: RHEUMATOID ARTHRITIS
  3. MOBIC [Concomitant]
     Indication: PRODUCT USED FOR UNKNOWN INDICATION
     Dosage: UNK
     Route: 065
  4. TRAMADOL HCL [Concomitant]
     Indication: PRODUCT USED FOR UNKNOWN INDICATION
     Dosage: UNK
     Route: 048

REACTIONS (5)
  - Loss of consciousness [Unknown]
  - Fall [Unknown]
  - Nocturia [Unknown]
  - Dehydration [Unknown]
  - Muscle spasms [Unknown]
